FAERS Safety Report 5099519-2 (Version None)
Quarter: 2006Q3

REPORT INFORMATION
  Report Type: 
  Country: None (occurrence: None)
  Receive Date: 20060908
  Receipt Date: 20060515
  Transmission Date: 20061208
  Serious: Yes (Congenital Anomaly)
  Sender: FDA-Public Use
  Company Number: PHBS2006CA07367

PATIENT
  Sex: Male
  Weight: 4.393 kg

DRUGS (2)
  1. LETROZOLE [Suspect]
     Route: 064
  2. LETROZOLE [Suspect]
     Dosage: MATERNAL DOSE: 2.5 MG/D FROM SEP 7 TO SEP 11

REACTIONS (3)
  - CONGENITAL ANOMALY [None]
  - DRUG EXPOSURE BEFORE PREGNANCY [None]
  - SYNDACTYLY [None]
